FAERS Safety Report 8121978 (Version 2)
Quarter: 2012Q4

REPORT INFORMATION
  Report Type: 
  Country: US (occurrence: US)
  Receive Date: 20110906
  Receipt Date: 20121009
  Transmission Date: 20130627
  Serious: Yes (Hospitalization)
  Sender: FDA-Public Use
  Company Number: US-US-EMD SERONO, INC.-7080437

PATIENT
  Age: 36 None
  Sex: Female

DRUGS (2)
  1. REBIF [Suspect]
     Indication: MULTIPLE SCLEROSIS
     Route: 058
     Dates: start: 20081203
  2. PHENTERMINE [Suspect]
     Indication: WEIGHT DECREASED

REACTIONS (10)
  - Heart rate increased [Unknown]
  - Dyspnoea [Unknown]
  - Intervertebral disc protrusion [Not Recovered/Not Resolved]
  - Back injury [Not Recovered/Not Resolved]
  - Anxiety [Not Recovered/Not Resolved]
  - Weight increased [Unknown]
  - Blood iron decreased [Unknown]
  - Hypothyroidism [Unknown]
  - Injection site induration [Recovered/Resolved]
  - Injection site bruising [Not Recovered/Not Resolved]
